FAERS Safety Report 16257472 (Version 3)
Quarter: 2019Q4

REPORT INFORMATION
  Report Type: Spontaneous
  Country: US (occurrence: US)
  Receive Date: 20190430
  Receipt Date: 20191015
  Transmission Date: 20200122
  Serious: Yes (Life-Threatening, Hospitalization, Disabling, Other)
  Sender: FDA-Public Use
  Company Number: US-ASTRAZENECA-2019SE64115

PATIENT
  Age: 707 Month
  Sex: Female
  Weight: 69.9 kg

DRUGS (1)
  1. IMFINZI [Suspect]
     Active Substance: DURVALUMAB
     Indication: LUNG NEOPLASM MALIGNANT
     Dosage: 10.0MG/KG UNKNOWN
     Route: 042
     Dates: start: 201903

REACTIONS (4)
  - Immune-mediated pneumonitis [Recovered/Resolved]
  - Nausea [Unknown]
  - Dyspnoea [Unknown]
  - Pulmonary mass [Unknown]

NARRATIVE: CASE EVENT DATE: 201904
